FAERS Safety Report 5779779-2 (Version None)
Quarter: 2008Q2

REPORT INFORMATION
  Report Type: 
  Country: None (occurrence: None)
  Receive Date: 20080618
  Receipt Date: 20080605
  Transmission Date: 20081010
  Serious: Yes (Hospitalization)
  Sender: FDA-Public Use
  Company Number: 230154J08BRA

PATIENT
  Age: 22 Year
  Sex: Female

DRUGS (1)
  1. REBIF [Suspect]
     Dosage: 44 MCG, 3 IN 1 WEEKS;
     Dates: start: 20080101

REACTIONS (4)
  - DIPLOPIA [None]
  - DIZZINESS [None]
  - SENSORY DISTURBANCE [None]
  - VOMITING [None]
